FAERS Safety Report 12854603 (Version 1)
Quarter: 2016Q4

REPORT INFORMATION
  Report Type: Spontaneous
  Country: AU (occurrence: AU)
  Receive Date: 20161017
  Receipt Date: 20161017
  Transmission Date: 20170207
  Serious: No
  Sender: FDA-Public Use
  Company Number: AU-TOLMAR, INC.-2015AU008200

PATIENT
  Sex: Male

DRUGS (1)
  1. ELIGARD [Suspect]
     Active Substance: LEUPROLIDE ACETATE
     Indication: PROSTATE CANCER
     Dosage: 22.5 MG, EVERY THREE MONTHS
     Route: 065
     Dates: start: 20140804

REACTIONS (5)
  - Pollakiuria [Unknown]
  - Prostatic specific antigen increased [Unknown]
  - Cough [Unknown]
  - Muscular weakness [Unknown]
  - Discomfort [Unknown]
